FAERS Safety Report 17210326 (Version 1)
Quarter: 2019Q4

REPORT INFORMATION
  Report Type: Spontaneous
  Country: US (occurrence: US)
  Receive Date: 20191227
  Receipt Date: 20191227
  Transmission Date: 20200122
  Serious: No
  Sender: FDA-Public Use
  Company Number: US-BRISTOL-MYERS SQUIBB COMPANY-BMS-2019-123681

PATIENT
  Sex: Male
  Weight: 136 kg

DRUGS (3)
  1. PROPRANOLOL [PROPRANOLOL HYDROCHLORIDE] [Interacting]
     Active Substance: PROPRANOLOL HYDROCHLORIDE
     Indication: TREMOR
     Dosage: UNK
     Route: 065
  2. ELIQUIS [Suspect]
     Active Substance: APIXABAN
     Indication: THROMBOSIS
     Dosage: UNAVAILABLE
     Route: 048
     Dates: start: 201908
  3. PRIMIDONE. [Interacting]
     Active Substance: PRIMIDONE
     Indication: TREMOR
     Dosage: UNK
     Route: 065

REACTIONS (1)
  - Drug interaction [Unknown]
